FAERS Safety Report 9531164 (Version 1)
Quarter: 2013Q3

REPORT INFORMATION
  Report Type: Spontaneous
  Country: FR (occurrence: FR)
  Receive Date: 20130918
  Receipt Date: 20130918
  Transmission Date: 20140515
  Serious: Yes (Hospitalization)
  Sender: FDA-Public Use
  Company Number: PHHY2013FR101866

PATIENT
  Age: 66 Year
  Sex: Male

DRUGS (2)
  1. GLIVEC [Suspect]
     Indication: CHRONIC MYELOID LEUKAEMIA
     Dosage: 400 MG, QD
     Route: 048
     Dates: start: 200111
  2. GLIVEC [Suspect]
     Dosage: 300 MG, QD
     Route: 048
     Dates: start: 201211

REACTIONS (2)
  - Acquired pigmented retinopathy [Not Recovered/Not Resolved]
  - Tunnel vision [Unknown]
